FAERS Safety Report 5651871-2 (Version None)
Quarter: 2008Q1

REPORT INFORMATION
  Report Type: 
  Country: None (occurrence: None)
  Receive Date: 20080304
  Receipt Date: 20080221
  Transmission Date: 20080703
  Serious: Yes (Death, Hospitalization)
  Sender: FDA-Public Use
  Company Number: 024440

PATIENT
  Age: 72 Year
  Sex: Male

DRUGS (3)
  1. CARBOPLATIN [Suspect]
     Indication: LUNG ADENOCARCINOMA STAGE IV
     Dosage: FIVE CYCLES,
  2. GEMCITABINE [Suspect]
     Indication: LUNG ADENOCARCINOMA STAGE IV
     Dosage: FIVE CYCLES
  3. GEFTINIB(GEFTINIB) [Suspect]
     Indication: LUNG ADENOCARCINOMA STAGE IV
     Dosage: 250 MG, ORAL
     Route: 048

REACTIONS (4)
  - BONE MARROW FAILURE [None]
  - HAEMATOLOGICAL MALIGNANCY [None]
  - MYELODYSPLASTIC SYNDROME [None]
  - SPINAL CORD COMPRESSION [None]
